FAERS Safety Report 15475731 (Version 2)
Quarter: 2018Q4

REPORT INFORMATION
  Report Type: Spontaneous
  Country: US (occurrence: US)
  Receive Date: 20181008
  Receipt Date: 20181016
  Transmission Date: 20190205
  Serious: No
  Sender: FDA-Public Use
  Company Number: US-AMGEN-USASP2018129228

PATIENT
  Age: 71 Year
  Sex: Female

DRUGS (11)
  1. PARAPLATIN [Suspect]
     Active Substance: CARBOPLATIN
     Dosage: 604.8 MG, CYCLICAL (DAY 1, CYCLE3)
     Route: 042
     Dates: start: 20180719
  2. NEULASTA [Suspect]
     Active Substance: PEGFILGRASTIM
     Indication: PRODUCT USED FOR UNKNOWN INDICATION
     Dosage: 6 MG, CYCLICAL
     Route: 058
     Dates: start: 20180628
  3. TAXOL [Suspect]
     Active Substance: PACLITAXEL
     Dosage: 259.5 MG, CYCLICAL (DAY1, CYCLE5)
     Route: 042
     Dates: start: 20180913
  4. PARAPLATIN [Suspect]
     Active Substance: CARBOPLATIN
     Dosage: 652.2 MG, CYCLICAL (DAY1, CYCLE2)
     Route: 042
     Dates: start: 20180628
  5. TAXOL [Suspect]
     Active Substance: PACLITAXEL
     Dosage: 302.76 MG, CYCLICAL (DAY1, CYCLE 3)
     Route: 042
     Dates: start: 20180719
  6. PARAPLATIN [Suspect]
     Active Substance: CARBOPLATIN
     Dosage: 523.5 MG, CYCLICAL (DAY1, CYCLE5)
     Route: 042
     Dates: start: 20180913
  7. PARAPLATIN [Suspect]
     Active Substance: CARBOPLATIN
     Dosage: 526.5 MG, CYCLICAL (DAY1, CYCLE4)
     Route: 042
     Dates: start: 20180823
  8. TAXOL [Suspect]
     Active Substance: PACLITAXEL
     Indication: PRODUCT USED FOR UNKNOWN INDICATION
     Dosage: 299.28 MG, CYCLICAL (DAY1, CYCLE1)
     Route: 042
     Dates: start: 20180607
  9. TAXOL [Suspect]
     Active Substance: PACLITAXEL
     Dosage: 299.28 MG, CYCLICAL (DAY1, CYCLE2)
     Route: 042
     Dates: start: 20180628
  10. TAXOL [Suspect]
     Active Substance: PACLITAXEL
     Dosage: 259.5 MG, CYCLICAL (DAY1, CYCLE4)
     Route: 042
     Dates: start: 20180823
  11. PARAPLATIN [Suspect]
     Active Substance: CARBOPLATIN
     Indication: PRODUCT USED FOR UNKNOWN INDICATION
     Dosage: 616.8 MG, CYCLICAL (DAY1, CYCLE1)
     Route: 042
     Dates: start: 20180607

REACTIONS (14)
  - Blood glucose increased [Unknown]
  - Platelet count decreased [Unknown]
  - White blood cell count increased [Unknown]
  - Platelet count abnormal [Unknown]
  - Wrong technique in product usage process [Unknown]
  - Blood sodium decreased [Unknown]
  - Monocyte count increased [Unknown]
  - Blood alkaline phosphatase increased [Unknown]
  - Haematocrit decreased [Unknown]
  - Mean cell volume increased [Unknown]
  - Haemoglobin decreased [Unknown]
  - Neutrophil count increased [Unknown]
  - Red blood cell count decreased [Unknown]
  - Mean cell haemoglobin increased [Unknown]

NARRATIVE: CASE EVENT DATE: 20180628
